FAERS Safety Report 6295893-X (Version None)
Quarter: 2009Q3

REPORT INFORMATION
  Report Type: 
  Country: None (occurrence: None)
  Receive Date: 20090804
  Receipt Date: 20090729
  Transmission Date: 20100115
  Serious: Yes (Death)
  Sender: FDA-Public Use
  Company Number: PHHY2009JP20309

PATIENT
  Sex: Male
  Weight: 47 kg

DRUGS (6)
  1. DIOVAN [Suspect]
     Indication: HYPERTENSION
     Dosage: 80 MG DAILY
     Route: 048
     Dates: start: 20080513, end: 20081219
  2. RENIVEZE [Concomitant]
     Indication: HYPERTENSION
     Dosage: 10 MG, UNK
     Route: 048
     Dates: start: 20050101
  3. AMLODIPINE [Concomitant]
     Indication: HYPERTENSION
     Dosage: 5 MG, UNK
     Route: 048
     Dates: start: 20050101
  4. LASIX [Concomitant]
     Indication: HYPERTENSION
     Dosage: 40 MG, UNK
     Route: 048
     Dates: start: 20050101
  5. PAMILCON [Concomitant]
     Dosage: 1.25 MG, UNK
     Route: 048
     Dates: start: 20050101
  6. VOGLIBOSE [Concomitant]
     Dosage: 0.9 MG, UNK
     Route: 048
     Dates: start: 20050101

REACTIONS (1)
  - BILE DUCT CANCER [None]
